FAERS Safety Report 14364669 (Version 1)
Quarter: 2018Q1

REPORT INFORMATION
  Report Type: Spontaneous
  Country: PH (occurrence: PH)
  Receive Date: 20180106
  Receipt Date: 20180106
  Transmission Date: 20180509
  Serious: No
  Sender: FDA-Public Use
  Company Number: None

PATIENT
  Sex: Male
  Weight: 74.7 kg

DRUGS (2)
  1. CLOBETASOL CREAM [Suspect]
     Active Substance: CLOBETASOL
  2. HYDROCORTISONE CREAM [Suspect]
     Active Substance: HYDROCORTISONE
     Indication: ECZEMA
     Route: 061

REACTIONS (9)
  - Eczema [None]
  - Drug ineffective [None]
  - Pain [None]
  - Skin haemorrhage [None]
  - Irritability [None]
  - Wound secretion [None]
  - Scar [None]
  - Educational problem [None]
  - Emotional distress [None]
